FAERS Safety Report 4807003-3 (Version None)
Quarter: 2005Q4

REPORT INFORMATION
  Report Type: 
  Country: None (occurrence: None)
  Receive Date: 20051024
  Receipt Date: 20051011
  Transmission Date: 20060501
  Serious: Yes (Hospitalization)
  Sender: FDA-Public Use
  Company Number: US-JNJFOC-20051002419

PATIENT
  Age: 71 Year
  Sex: Male

DRUGS (20)
  1. REMICADE [Suspect]
     Indication: RHEUMATOID ARTHRITIS
     Route: 042
  2. BACTRIM DS [Concomitant]
  3. BACTRIM DS [Concomitant]
  4. DICLOFENAC [Concomitant]
  5. ZETIA [Concomitant]
  6. PRILOSEC [Concomitant]
  7. PREDNISONE TAB [Concomitant]
  8. FOLIC ACID [Concomitant]
  9. MULTI-VITAMIN [Concomitant]
  10. MULTI-VITAMIN [Concomitant]
  11. MULTI-VITAMIN [Concomitant]
  12. MULTI-VITAMIN [Concomitant]
  13. MULTI-VITAMIN [Concomitant]
  14. MULTI-VITAMIN [Concomitant]
  15. MULTI-VITAMIN [Concomitant]
  16. MULTI-VITAMIN [Concomitant]
  17. CALCIUM WITH VITAMIN D [Concomitant]
  18. CALCIUM WITH VITAMIN D [Concomitant]
  19. CALCIUM WITH VITAMIN D [Concomitant]
  20. FISH OIL [Concomitant]

REACTIONS (4)
  - DEHYDRATION [None]
  - DIZZINESS [None]
  - VISION BLURRED [None]
  - VOMITING [None]
